FAERS Safety Report 23977475 (Version 1)
Quarter: 2024Q2

REPORT INFORMATION
  Report Type: Spontaneous
  Country: CN (occurrence: CN)
  Receive Date: 20240614
  Receipt Date: 20240614
  Transmission Date: 20240716
  Serious: Yes (Other)
  Sender: FDA-Public Use
  Company Number: CN-ELI_LILLY_AND_COMPANY-CN202406002610

PATIENT
  Sex: Female
  Weight: 45 kg

DRUGS (6)
  1. ABEMACICLIB [Suspect]
     Active Substance: ABEMACICLIB
     Indication: Metastases to bone
     Dosage: UNK, UNKNOWN
     Route: 065
  2. ABEMACICLIB [Suspect]
     Active Substance: ABEMACICLIB
     Indication: Invasive ductal breast carcinoma
  3. FULVESTRANT [Concomitant]
     Active Substance: FULVESTRANT
     Indication: Metastases to bone
     Dosage: UNK, UNKNOWN
     Route: 065
  4. FULVESTRANT [Concomitant]
     Active Substance: FULVESTRANT
     Indication: Invasive ductal breast carcinoma
  5. ZOLEDRONATE DISODIUM [Concomitant]
     Active Substance: ZOLEDRONATE DISODIUM
     Indication: Metastases to bone
     Dosage: UNK, UNKNOWN
     Route: 065
  6. ZOLEDRONATE DISODIUM [Concomitant]
     Active Substance: ZOLEDRONATE DISODIUM
     Indication: Invasive ductal breast carcinoma

REACTIONS (14)
  - Renal failure [Unknown]
  - Spleen disorder [Unknown]
  - Laziness [Unknown]
  - Poor quality sleep [Recovered/Resolved]
  - Pallor [Unknown]
  - Erythema [Unknown]
  - Tongue disorder [Recovering/Resolving]
  - Pulse abnormal [Unknown]
  - Weight decreased [Recovering/Resolving]
  - Dyspepsia [Recovering/Resolving]
  - Diarrhoea [Recovering/Resolving]
  - Decreased appetite [Recovered/Resolved]
  - Asthenia [Unknown]
  - Dizziness [Unknown]
